FAERS Safety Report 14326807 (Version 2)
Quarter: 2018Q1

REPORT INFORMATION
  Report Type: Report from Study
  Country: US (occurrence: US)
  Receive Date: 20171227
  Receipt Date: 20180104
  Transmission Date: 20180509
  Serious: Yes (Other)
  Sender: FDA-Public Use
  Company Number: US-BEH-2017086131

PATIENT
  Age: 39 Year
  Sex: Female
  Weight: 57.15 kg

DRUGS (3)
  1. HIZENTRA [Suspect]
     Active Substance: HUMAN IMMUNOGLOBULIN G
     Indication: IMMUNODEFICIENCY COMMON VARIABLE
  2. EPIPEN [Concomitant]
     Active Substance: EPINEPHRINE
  3. HIZENTRA [Suspect]
     Active Substance: HUMAN IMMUNOGLOBULIN G
     Indication: PRIMARY IMMUNODEFICIENCY SYNDROME
     Dosage: 10 G, QW
     Route: 058
     Dates: start: 20171215, end: 201712

REACTIONS (9)
  - Emotional distress [Recovered/Resolved]
  - Flank pain [Recovered/Resolved]
  - Wheezing [Recovered/Resolved]
  - Eye swelling [Recovered/Resolved]
  - Body temperature increased [Recovered/Resolved]
  - Swelling face [Recovered/Resolved]
  - Chromaturia [Recovered/Resolved]
  - Lip swelling [Recovered/Resolved]
  - Abdominal distension [Recovered/Resolved]

NARRATIVE: CASE EVENT DATE: 20171215
